FAERS Safety Report 22109010 (Version 4)
Quarter: 2025Q2

REPORT INFORMATION
  Report Type: Spontaneous
  Country: JP (occurrence: JP)
  Receive Date: 20230317
  Receipt Date: 20250508
  Transmission Date: 20250716
  Serious: Yes (Other)
  Sender: NOVARTIS
  Company Number: JP-002147023-NVSJ2023JP004872

PATIENT
  Age: 30 Year
  Sex: Female

DRUGS (3)
  1. NEORAL [Suspect]
     Active Substance: CYCLOSPORINE
     Indication: Renal transplant
     Route: 065
  2. NEORAL [Suspect]
     Active Substance: CYCLOSPORINE
     Indication: Immunosuppression
  3. METHYLPREDNISOLONE [Suspect]
     Active Substance: METHYLPREDNISOLONE
     Indication: Immunosuppression
     Route: 065

REACTIONS (3)
  - Premature delivery [Unknown]
  - Premature labour [Unknown]
  - Maternal exposure during pregnancy [Unknown]
